FAERS Safety Report 5863519-2 (Version None)
Quarter: 2008Q3

REPORT INFORMATION
  Report Type: 
  Country: None (occurrence: None)
  Receive Date: 20080828
  Receipt Date: 20080825
  Transmission Date: 20090109
  Serious: Yes (Other)
  Sender: FDA-Public Use
  Company Number: IT-BOEHRINGER INGELHEIM GMBH, GERMANY-2008-BP-13327RO

PATIENT
  Age: 25 Year
  Sex: Male
  Weight: 55 kg

DRUGS (4)
  1. METHADONE HCL [Suspect]
     Indication: DRUG WITHDRAWAL MAINTENANCE THERAPY
     Dates: start: 20041202
  2. METHADONE HCL [Suspect]
  3. HEROIN [Suspect]
  4. CANNABIS [Suspect]

REACTIONS (3)
  - DRUG CLEARANCE INCREASED [None]
  - DRUG LEVEL DECREASED [None]
  - DRUG SCREEN NEGATIVE [None]
